FAERS Safety Report 13835248 (Version 18)
Quarter: 2019Q1

REPORT INFORMATION
  Report Type: Spontaneous
  Country: JP (occurrence: JP)
  Receive Date: 20170804
  Receipt Date: 20190226
  Transmission Date: 20190417
  Serious: Yes (Death, Life-Threatening, Hospitalization, Other)
  Sender: FDA-Public Use
  Company Number: JP-009507513-1706JPN001028J

PATIENT
  Age: 70 Year
  Sex: Male
  Weight: 64 kg

DRUGS (8)
  1. BLOPRESS [Concomitant]
     Active Substance: CANDESARTAN CILEXETIL
     Dosage: 4.0 MG, QD
     Route: 048
  2. CRESTOR [Concomitant]
     Active Substance: ROSUVASTATIN CALCIUM
     Dosage: 2.5 MG, QD
     Route: 048
  3. RIZE [Concomitant]
     Active Substance: CLOTIAZEPAM
     Indication: LUMBAR SPINAL STENOSIS
     Dosage: 5.0 MG, QD
     Route: 048
  4. LIMAPROST ALFADEX [Concomitant]
     Active Substance: LIMAPROST
     Dosage: 5.0 MICROGRAM, TID
     Route: 048
  5. ASTOMIN [Concomitant]
     Active Substance: DIMEMORFAN
     Indication: LUNG ADENOCARCINOMA
     Dosage: 20.0 MG, TID
     Route: 048
     Dates: end: 20170521
  6. MUCOSTA [Concomitant]
     Active Substance: REBAMIPIDE
     Indication: LUMBAR SPINAL STENOSIS
     Dosage: 100.0 MG, BID
     Route: 048
  7. KEYTRUDA [Suspect]
     Active Substance: PEMBROLIZUMAB
     Indication: LUNG ADENOCARCINOMA
     Dosage: 200 MG, QD
     Route: 041
     Dates: start: 20170512, end: 20170512
  8. CELECOX [Concomitant]
     Active Substance: CELECOXIB
     Indication: LUMBAR SPINAL STENOSIS
     Dosage: 100.0 MG, BID
     Route: 048

REACTIONS (4)
  - Pseudomonal sepsis [Fatal]
  - Septic shock [Fatal]
  - Interstitial lung disease [Recovering/Resolving]
  - Platelet count decreased [Unknown]

NARRATIVE: CASE EVENT DATE: 2017
